FAERS Safety Report 11088379 (Version 1)
Quarter: 2015Q2

REPORT INFORMATION
  Report Type: Spontaneous
  Country: CN (occurrence: CN)
  Receive Date: 20150504
  Receipt Date: 20150504
  Transmission Date: 20150821
  Serious: Yes (Hospitalization)
  Sender: FDA-Public Use
  Company Number: CN-GE HEALTHCARE MEDICAL DIAGNOSTICS-OMPQ-PR-1504S-0626

PATIENT
  Age: 70 Year
  Sex: Female
  Weight: 45 kg

DRUGS (6)
  1. YIXINKANG [Concomitant]
  2. OMNIPAQUE [Suspect]
     Active Substance: IOHEXOL
     Indication: CARDIAC IMAGING PROCEDURE
     Route: 042
     Dates: start: 20150425, end: 20150425
  3. CREATINE PHOSPHATE SODIUM [Concomitant]
     Active Substance: CREATINE
  4. TRIMETAZIDINE [Concomitant]
     Active Substance: TRIMETAZIDINE
  5. ROSUVASTATIN CALCIUM. [Concomitant]
     Active Substance: ROSUVASTATIN CALCIUM
  6. OMNIPAQUE [Suspect]
     Active Substance: IOHEXOL
     Indication: DIAGNOSTIC PROCEDURE

REACTIONS (4)
  - Hyperhidrosis [Recovering/Resolving]
  - Muscular weakness [Recovering/Resolving]
  - Atrial fibrillation [Recovering/Resolving]
  - Dyspnoea [Recovering/Resolving]

NARRATIVE: CASE EVENT DATE: 20150425
